FAERS Safety Report 7261879-1 (Version None)
Quarter: 2011Q1

REPORT INFORMATION
  Report Type: 
  Country: None (occurrence: None)
  Receive Date: 20110125
  Receipt Date: 20110125
  Transmission Date: 20110831
  Serious: No
  Sender: FDA-Public Use
  Company Number: None

PATIENT
  Age: 12 Year
  Sex: Female
  Weight: 33.6 kg

DRUGS (2)
  1. ALCOHOL PREP PAD GULF SOUTH MEDICAL SUPPLY [Suspect]
  2. VIVAGLOBIN [Concomitant]

REACTIONS (5)
  - INJECTION SITE ERYTHEMA [None]
  - PRODUCT QUALITY ISSUE [None]
  - INJECTION SITE SWELLING [None]
  - INFECTION [None]
  - MALAISE [None]
